FAERS Safety Report 6314343-8 (Version None)
Quarter: 2009Q3

REPORT INFORMATION
  Report Type: 
  Country: None (occurrence: None)
  Receive Date: 20090819
  Receipt Date: 20090811
  Transmission Date: 20100115
  Serious: Yes (Life-Threatening)
  Sender: FDA-Public Use
  Company Number: AU-ELI_LILLY_AND_COMPANY-AU200907001902

PATIENT
  Sex: Male

DRUGS (5)
  1. BYETTA [Suspect]
     Dosage: UNK, UNKNOWN
     Route: 065
     Dates: start: 20071001, end: 20090501
  2. METFORMIN [Concomitant]
     Dosage: 2000 MG, DAILY (1/D)
     Route: 065
  3. LEVEMIR [Concomitant]
     Dosage: 60 U, UNKNOWN
     Route: 065
  4. ATORVASTATIN [Concomitant]
     Dosage: 40 MG, UNKNOWN
     Route: 065
  5. TELMISARTAN [Concomitant]
     Dosage: 40 MG, UNKNOWN
     Route: 065

REACTIONS (1)
  - GASTROINTESTINAL STROMAL TUMOUR [None]
